FAERS Safety Report 21571430 (Version 1)
Quarter: 2022Q4

REPORT INFORMATION
  Report Type: Report from Study
  Country: MX (occurrence: MX)
  Receive Date: 20221109
  Receipt Date: 20221109
  Transmission Date: 20230113
  Serious: Yes (Other)
  Sender: FDA-Public Use
  Company Number: MX-002147023-NVSC2022MX173799

PATIENT
  Sex: Female
  Weight: 58.7 kg

DRUGS (3)
  1. KISQALI [Suspect]
     Active Substance: RIBOCICLIB
     Indication: Breast cancer
     Dosage: UNK UNK, QD
     Route: 048
  2. KISQALI [Suspect]
     Active Substance: RIBOCICLIB
     Dosage: 3 DOSAGE FORM
     Route: 048
  3. KISQALI [Suspect]
     Active Substance: RIBOCICLIB
     Dosage: 2 DOSAGE FORM
     Route: 048

REACTIONS (15)
  - Metastasis [Unknown]
  - Pulmonary oedema [Unknown]
  - Neutropenia [Unknown]
  - Weight decreased [Unknown]
  - Malaise [Unknown]
  - Insomnia [Unknown]
  - Anisocytosis [Unknown]
  - Macrocytosis [Unknown]
  - Pruritus [Unknown]
  - Dry skin [Recovering/Resolving]
  - Dizziness [Recovered/Resolved]
  - Constipation [Recovered/Resolved]
  - Nausea [Recovered/Resolved]
  - Fatigue [Unknown]
  - Lung disorder [Unknown]
